FAERS Safety Report 7645862-X (Version None)
Quarter: 2011Q3

REPORT INFORMATION
  Report Type: 
  Country: None (occurrence: None)
  Receive Date: 20110729
  Receipt Date: 20110722
  Transmission Date: 20111222
  Serious: Yes (Hospitalization, Disabling)
  Sender: FDA-Public Use
  Company Number: US-GENENTECH-322048

PATIENT

DRUGS (1)
  1. OMALIZUMAB [Suspect]
     Indication: ASTHMA

REACTIONS (1)
  - LUMBAR SPINAL STENOSIS [None]
